FAERS Safety Report 6441430-6 (Version None)
Quarter: 2009Q4

REPORT INFORMATION
  Report Type: 
  Country: None (occurrence: None)
  Receive Date: 20091116
  Receipt Date: 20091111
  Transmission Date: 20100525
  Serious: Yes (Congenital Anomaly)
  Sender: FDA-Public Use
  Company Number: A0681444A

PATIENT
  Sex: Female

DRUGS (7)
  1. PAXIL CR [Suspect]
     Indication: BIPOLAR DISORDER
     Dates: start: 20040816, end: 20040901
  2. PAXIL [Suspect]
     Indication: BIPOLAR DISORDER
     Dates: start: 20041001, end: 20041101
  3. LAMICTAL [Concomitant]
  4. TRILEPTAL [Concomitant]
  5. EFFEXOR [Concomitant]
  6. SEROQUEL [Concomitant]
  7. VITAMIN TAB [Concomitant]

REACTIONS (4)
  - ATRIOVENTRICULAR SEPTAL DEFECT [None]
  - COLLAPSE OF LUNG [None]
  - CONGENITAL ANOMALY [None]
  - DRUG EXPOSURE DURING PREGNANCY [None]
